FAERS Safety Report 4275218-1 (Version None)
Quarter: 2004Q1

REPORT INFORMATION
  Report Type: 
  Country: None (occurrence: None)
  Receive Date: 20040116
  Receipt Date: 20040106
  Transmission Date: 20041129
  Serious: Yes (Hospitalization, Other)
  Sender: FDA-Public Use
  Company Number: HQWYE210409JAN04

PATIENT
  Age: 54 Year

DRUGS (3)
  1. CORDARONE [Suspect]
     Indication: ATRIAL FIBRILLATION
     Dosage: SEE IMAGE
  2. BUMETANIDE [Concomitant]
  3. ENALAPRIL MALEATE [Concomitant]

REACTIONS (12)
  - AFFECT LABILITY [None]
  - ATRIAL FIBRILLATION [None]
  - CARDIAC FAILURE [None]
  - CONDITION AGGRAVATED [None]
  - CONFUSIONAL STATE [None]
  - DEPRESSION [None]
  - MENTAL STATUS CHANGES [None]
  - PARANOIA [None]
  - RASH MACULAR [None]
  - SLEEP DISORDER [None]
  - SPEECH DISORDER [None]
  - TANGENTIALITY [None]
